FAERS Safety Report 9498498 (Version 1)
Quarter: 2013Q3

REPORT INFORMATION
  Report Type: Spontaneous
  Country: US (occurrence: US)
  Receive Date: 20130904
  Receipt Date: 20130904
  Transmission Date: 20140515
  Serious: Yes (Hospitalization)
  Sender: FDA-Public Use
  Company Number: US-GLAXOSMITHKLINE-A1039867A

PATIENT
  Sex: Male

DRUGS (1)
  1. ADVAIR [Suspect]
     Indication: PRODUCT USED FOR UNKNOWN INDICATION
     Route: 065

REACTIONS (5)
  - Hip arthroplasty [Unknown]
  - Staphylococcal infection [Not Recovered/Not Resolved]
  - Cough [Unknown]
  - Wheelchair user [Not Recovered/Not Resolved]
  - Drug administration error [Unknown]
